FAERS Safety Report 11593134 (Version 3)
Quarter: 2016Q1

REPORT INFORMATION
  Report Type: Report from Study
  Country: US (occurrence: US)
  Receive Date: 20151005
  Receipt Date: 20160115
  Transmission Date: 20160525
  Serious: Yes (Other)
  Sender: FDA-Public Use
  Company Number: US-AMGEN-USASP2015102462

PATIENT
  Age: 67 Year
  Sex: Male
  Weight: 87.53 kg

DRUGS (6)
  1. AMLODIPINE BESYLATE. [Concomitant]
     Active Substance: AMLODIPINE BESYLATE
     Dosage: 10 MG, UNK
     Route: 048
     Dates: start: 20130429
  2. LISINOPRIL. [Concomitant]
     Active Substance: LISINOPRIL
     Dosage: 40 MG, QD
     Route: 048
  3. JANTOVEN [Concomitant]
     Active Substance: WARFARIN SODIUM
     Dosage: 10 MG, QD
     Route: 048
  4. RITUXAN [Concomitant]
     Active Substance: RITUXIMAB
  5. NPLATE [Suspect]
     Active Substance: ROMIPLOSTIM
     Indication: IMMUNE THROMBOCYTOPENIC PURPURA
     Dosage: 88 MUG, QWK
     Route: 058
     Dates: start: 201211
  6. DOXYCYCLINE HYCLATE. [Concomitant]
     Active Substance: DOXYCYCLINE HYCLATE
     Dosage: 100 MG, BID
     Route: 048

REACTIONS (15)
  - White blood cell count increased [Unknown]
  - Injection site mass [Unknown]
  - Injection site pruritus [Unknown]
  - Feeling abnormal [Recovered/Resolved]
  - Platelet count decreased [Unknown]
  - Respiratory tract congestion [Recovered/Resolved]
  - Pyrexia [Recovered/Resolved]
  - Rhinorrhoea [Recovered/Resolved]
  - Seasonal allergy [Recovered/Resolved]
  - Platelet count abnormal [Unknown]
  - Malaise [Unknown]
  - Pain in extremity [Recovering/Resolving]
  - Inappropriate schedule of drug administration [Unknown]
  - Injection site irritation [Unknown]
  - Nasopharyngitis [Unknown]

NARRATIVE: CASE EVENT DATE: 201512
